FAERS Safety Report 24550680 (Version 1)
Quarter: 2024Q4

REPORT INFORMATION
  Report Type: Report from Study
  Country: NL (occurrence: NL)
  Receive Date: 20241025
  Receipt Date: 20241025
  Transmission Date: 20250114
  Serious: Yes (Hospitalization)
  Sender: ABBVIE
  Company Number: NL-ABBVIE-5940794

PATIENT
  Age: 76 Year
  Sex: Female

DRUGS (22)
  1. CARBIDOPA\LEVODOPA [Suspect]
     Active Substance: CARBIDOPA\LEVODOPA
     Indication: Parkinson^s disease
     Dosage: LD: 1.10 ML, BIR: 0.58ML/H, HIR: 0.58ML/H, LIR: 0.31ML/H, ED: 0.25ML, REMAINS AT 24 HOURS
     Route: 058
     Dates: start: 20240724, end: 20240801
  2. CARBIDOPA\LEVODOPA [Suspect]
     Active Substance: CARBIDOPA\LEVODOPA
     Dosage: LD: 1.10 ML, BIR: 0.58ML/H, HIR: 0.58ML/H, LIR: 0.31ML/H, ED: 0.25ML, REMAINS AT 24 HOURS
     Route: 058
     Dates: start: 20240718, end: 20240724
  3. CARBIDOPA\LEVODOPA [Suspect]
     Active Substance: CARBIDOPA\LEVODOPA
     Dosage: LD: 1.10 ML, BIR: 0.61ML/H, HIR: 0.61ML/H, LIR: 0.34ML/H, ED: 0.20ML
     Route: 058
     Dates: start: 20240924
  4. CARBIDOPA\LEVODOPA [Suspect]
     Active Substance: CARBIDOPA\LEVODOPA
     Dosage: LD: 1.10 ML, BIR: 0.48ML/H, HIR: 0.48ML/H, LIR: 0.24ML/H, ED: 0.10ML, REMAINS AT 24 HOURS
     Route: 058
     Dates: start: 20240708, end: 20240708
  5. CARBIDOPA\LEVODOPA [Suspect]
     Active Substance: CARBIDOPA\LEVODOPA
     Dosage: LD: 1.10 ML, BIR: 0.48ML/H, HIR: 0.48ML/H, LIR: 0.27ML/H, ED: 0.20ML, REMAINS AT 24 HOURS
     Route: 058
     Dates: start: 20240709, end: 20240710
  6. CARBIDOPA\LEVODOPA [Suspect]
     Active Substance: CARBIDOPA\LEVODOPA
     Dosage: LD: 1.10 ML, BIR: 0.59ML/H, HIR: 0.59ML/H, LIR: 0.32ML/H, ED: 0.20ML, REMAINS AT 24 HOURS
     Route: 058
     Dates: start: 20240903, end: 20240916
  7. CARBIDOPA\LEVODOPA [Suspect]
     Active Substance: CARBIDOPA\LEVODOPA
     Dosage: LD: 1.10 ML, BIR: 0.55ML/H, HIR: 0.55ML/H, LIR: 0.27ML/H, ED: 0.30ML, REMAINS AT 24 HOURS
     Route: 058
     Dates: start: 20240711, end: 20240716
  8. CARBIDOPA\LEVODOPA [Suspect]
     Active Substance: CARBIDOPA\LEVODOPA
     Dosage: LD: 1.10 ML, BIR: 0.61ML/H, HIR: 0.61ML/H, LIR: 0.34ML/H, ED: 0.20ML
     Route: 058
     Dates: start: 20240916, end: 20240924
  9. CARBIDOPA\LEVODOPA [Suspect]
     Active Substance: CARBIDOPA\LEVODOPA
     Dosage: LD: 1.10 ML, BIR: 0.58ML/H, HIR: 0.58ML/H, LIR: 0.32ML/H, ED: 0.20ML, REMAINS AT 24 HOURS
     Route: 058
     Dates: start: 20240801, end: 20240903
  10. CARBIDOPA\LEVODOPA [Suspect]
     Active Substance: CARBIDOPA\LEVODOPA
     Dosage: LD: 1.10 ML, BIR: 0.56ML/H, HIR: 0.56ML/H, LIR: 0.29ML/H, ED: 0.25ML, REMAINS AT 24 HOURS
     Route: 058
     Dates: start: 20240716, end: 20240718
  11. CARBIDOPA\LEVODOPA [Suspect]
     Active Substance: CARBIDOPA\LEVODOPA
     Dosage: LD: 1.10 ML, BIR: 0.53ML/H, HIR: 0.53ML/H, LIR: 0.27ML/H, ED: 0.25ML, REMAINS AT 24 HOURS
     Route: 058
     Dates: start: 20240710, end: 20240711
  12. CARBIDOPA\LEVODOPA [Suspect]
     Active Substance: CARBIDOPA\LEVODOPA
     Dosage: LD: 1.10 ML, BIR: 0.47ML/H, HIR: 0.47ML/H, LIR: 0.24ML/H, ED: 0.10ML, REMAINS AT 24 HOURS
     Route: 058
     Dates: start: 20240708, end: 20240709
  13. Madapor [Concomitant]
     Indication: Parkinson^s disease
  14. SINEMET [Concomitant]
     Active Substance: CARBIDOPA\LEVODOPA
     Indication: Parkinson^s disease
  15. ENTACAPONE [Concomitant]
     Active Substance: ENTACAPONE
     Indication: Parkinson^s disease
     Dosage: TIME INTERVAL: 0.16666667 DAYS
  16. ROSUVASTATIN [Concomitant]
     Active Substance: ROSUVASTATIN
     Indication: Blood cholesterol increased
     Dosage: 1X1 PER DAY AT 11:00 PM
  17. Pantoprazole Pensa [Concomitant]
     Indication: Gastrointestinal disorder prophylaxis
  18. PROPRANOLOL HYDROCHLORIDE [Concomitant]
     Active Substance: PROPRANOLOL HYDROCHLORIDE
     Indication: Blood pressure measurement
     Dosage: 1 DOSAGE FORM
  19. CARBASPIRIN CALCIUM [Concomitant]
     Active Substance: CARBASPIRIN CALCIUM
     Indication: Anticoagulant therapy
     Dosage: 1X1 PER DAY AT 8 AM
  20. COLECALCIFEROL BENFEROL [Concomitant]
     Indication: Vitamin D
     Dosage: ONCE IN EVERY TUESDAY
  21. Madopar Hydrodynamically Balanced System [Concomitant]
     Indication: Parkinson^s disease
     Dosage: FORM STRENGTH: 125, FREQUENCY: 1X2 PER DAY AT 11:00 PM
  22. LEVODOPA [Concomitant]
     Active Substance: LEVODOPA
     Indication: Product used for unknown indication

REACTIONS (25)
  - Unevaluable event [Unknown]
  - Restlessness [Not Recovered/Not Resolved]
  - On and off phenomenon [Not Recovered/Not Resolved]
  - Constipation [Recovering/Resolving]
  - Speech disorder [Not Recovered/Not Resolved]
  - Heart rate decreased [Recovered/Resolved]
  - Malaise [Recovered/Resolved]
  - Asthenia [Not Recovered/Not Resolved]
  - Confusional state [Not Recovered/Not Resolved]
  - Loss of consciousness [Recovered/Resolved]
  - Haematochezia [Not Recovered/Not Resolved]
  - Coronavirus infection [Not Recovered/Not Resolved]
  - Pallor [Recovered/Resolved]
  - Mucous stools [Recovering/Resolving]
  - Hypophagia [Not Recovered/Not Resolved]
  - Nutritional supplementation [Not Recovered/Not Resolved]
  - Screaming [Not Recovered/Not Resolved]
  - Gait disturbance [Not Recovered/Not Resolved]
  - Infusion site bruising [Not Recovered/Not Resolved]
  - Dyskinesia [Recovered/Resolved]
  - Appetite disorder [Not Recovered/Not Resolved]
  - Infusion site discomfort [Not Recovered/Not Resolved]
  - Tremor [Not Recovered/Not Resolved]
  - Abdominal pain [Not Recovered/Not Resolved]
  - Abdominal pain [Not Recovered/Not Resolved]

NARRATIVE: CASE EVENT DATE: 20240101
